FAERS Safety Report 8136011-2 (Version None)
Quarter: 2012Q1

REPORT INFORMATION
  Report Type: 
  Country: None (occurrence: None)
  Receive Date: 20120214
  Receipt Date: 20120210
  Transmission Date: 20120608
  Serious: No
  Sender: FDA-Public Use
  Company Number: US-PFIZER INC-2012037175

PATIENT
  Sex: Male
  Weight: 74.83 kg

DRUGS (9)
  1. COMBIVENT [Concomitant]
     Dosage: UNK
  2. OXYCODONE [Concomitant]
     Dosage: UNK
  3. MORPHINE SULFATE [Suspect]
     Dosage: UNK
  4. LOSARTAN [Concomitant]
     Indication: HYPERTENSION
     Dosage: UNK
  5. LYRICA [Suspect]
     Dosage: UNK
     Route: 048
  6. AMLODIPINE [Concomitant]
     Indication: HYPERTENSION
     Dosage: UNK
  7. LYRICA [Suspect]
     Indication: FIBROMYALGIA
     Dosage: 50 MG, 2X/DAY
     Route: 048
     Dates: start: 20120101
  8. SOMA [Concomitant]
     Dosage: UNK
  9. TEMAZEPAM [Concomitant]
     Dosage: UNK

REACTIONS (5)
  - PRE-EXISTING CONDITION IMPROVED [None]
  - THERAPEUTIC RESPONSE UNEXPECTED [None]
  - DRUG HYPERSENSITIVITY [None]
  - CHRONIC SINUSITIS [None]
  - RHINORRHOEA [None]
